FAERS Safety Report 14915384 (Version 2)
Quarter: 2018Q2

REPORT INFORMATION
  Report Type: Spontaneous
  Country: US (occurrence: US)
  Receive Date: 20180518
  Receipt Date: 20180612
  Transmission Date: 20180711
  Serious: Yes (Other)
  Sender: FDA-Public Use
  Company Number: US-INCYTE CORPORATION-2016IN002662

PATIENT
  Sex: Male

DRUGS (2)
  1. JAKAFI [Suspect]
     Active Substance: RUXOLITINIB
     Indication: POLYCYTHAEMIA VERA
     Dosage: 10 MG (TWICE DAILY)
     Route: 048
     Dates: start: 20160226, end: 20180426
  2. JAKAFI [Suspect]
     Active Substance: RUXOLITINIB
     Dosage: 10 MG 1/2 TAB (TWICE DAILY)
     Route: 048
     Dates: start: 20180427

REACTIONS (3)
  - Incorrect dose administered [Unknown]
  - Pancytopenia [Unknown]
  - Haematocrit decreased [Unknown]
